FAERS Safety Report 10098606 (Version 3)
Quarter: 2014Q2

REPORT INFORMATION
  Report Type: Spontaneous
  Country: US (occurrence: US)
  Receive Date: 20140423
  Receipt Date: 20140522
  Transmission Date: 20141212
  Serious: No
  Sender: FDA-Public Use
  Company Number: US-B.I. PHARMACEUTICALS,INC./RIDGEFIELD-2014-BI-16977BP

PATIENT
  Sex: Male
  Weight: 77 kg

DRUGS (4)
  1. SPIRIVA [Suspect]
     Indication: EMPHYSEMA
     Dosage: 18 MCG
     Route: 055
     Dates: start: 2010
  2. PERCOCET [Concomitant]
     Indication: ARTHRALGIA
     Dosage: STRENGTH: 1 TABLET
     Route: 048
  3. SIMVASTATIN [Concomitant]
     Indication: BLOOD CHOLESTEROL INCREASED
     Dosage: STRENGTH: 1 TABLET; DAILY DOSE: 1 TABLET
     Route: 048
  4. TRAMADOL [Concomitant]
     Indication: ARTHRALGIA
     Dosage: STRENGTH: 1 TABLET;
     Route: 048

REACTIONS (4)
  - Dyspnoea [Not Recovered/Not Resolved]
  - Product quality issue [Recovered/Resolved]
  - Product quality issue [Recovered/Resolved]
  - Product quality issue [Recovered/Resolved]
